FAERS Safety Report 26171321 (Version 1)
Quarter: 2025Q4

REPORT INFORMATION
  Report Type: Report from Study
  Country: EU (occurrence: EU)
  Receive Date: 20251217
  Receipt Date: 20251217
  Transmission Date: 20260117
  Serious: Yes (Other)
  Sender: MYLAN
  Company Number: EU-ROCHE-2489331

PATIENT
  Age: 44 Year
  Sex: Female

DRUGS (5)
  1. CANDESARTAN [Suspect]
     Active Substance: CANDESARTAN
     Indication: Product used for unknown indication
     Dosage: 4 MILLIGRAM, QD
  2. OCREVUS [Suspect]
     Active Substance: OCRELIZUMAB
     Indication: Progressive relapsing multiple sclerosis
     Dosage: 600 MG, 196 DAYS (THEN 600 MG ONCE IN 189 DAYS, 182 DAYS, 174 DAYS, 190 DAYS, 183 DAYS, 195 DAYS)
  3. OCREVUS [Suspect]
     Active Substance: OCRELIZUMAB
     Indication: Secondary progressive multiple sclerosis
  4. COMIRNATY (TOZINAMERAN) [Suspect]
     Active Substance: TOZINAMERAN
     Indication: Product used for unknown indication
     Dosage: UNK (VACCINATION)
  5. ACETAMINOPHEN [Concomitant]
     Active Substance: ACETAMINOPHEN
     Dosage: UNK, PRN

REACTIONS (18)
  - Secondary progressive multiple sclerosis [Recovered/Resolved]
  - Headache [Recovered/Resolved]
  - Nail bed inflammation [Recovered/Resolved]
  - Paraesthesia [Recovered/Resolved]
  - Fungal skin infection [Recovered/Resolved]
  - Pyrexia [Recovered/Resolved]
  - Hypotonia [Recovered/Resolved]
  - Dissociative disorder [Recovered/Resolved]
  - Arthralgia [Recovered/Resolved]
  - Gait disturbance [Recovered/Resolved]
  - COVID-19 [Recovered/Resolved]
  - Balance disorder [Recovering/Resolving]
  - Taste disorder [Recovering/Resolving]
  - Ataxia [Recovered/Resolved]
  - Tongue coated [Recovered/Resolved]
  - Dizziness [Recovered/Resolved]
  - Cough [Not Recovered/Not Resolved]
  - Off label use [Unknown]

NARRATIVE: CASE EVENT DATE: 20181022
